FAERS Safety Report 8228502-0 (Version None)
Quarter: 2012Q1

REPORT INFORMATION
  Report Type: 
  Country: None (occurrence: None)
  Receive Date: 20120322
  Receipt Date: 20110520
  Transmission Date: 20120608
  Serious: Yes (Death, Hospitalization)
  Sender: FDA-Public Use
  Company Number: US-BRISTOL-MYERS SQUIBB COMPANY-15768203

PATIENT
  Age: 64 Year
  Sex: Male

DRUGS (3)
  1. TYLENOL [Concomitant]
     Indication: PREMEDICATION
  2. BENADRYL [Concomitant]
     Indication: PREMEDICATION
  3. ERBITUX [Suspect]
     Indication: COLORECTAL CANCER

REACTIONS (1)
  - CARDIAC ARREST [None]
